FAERS Safety Report 14684064 (Version 2)
Quarter: 2018Q1

REPORT INFORMATION
  Report Type: Report from Study
  Country: CA (occurrence: CA)
  Receive Date: 20180327
  Receipt Date: 20180330
  Transmission Date: 20180509
  Serious: Yes (Other)
  Sender: FDA-Public Use
  Company Number: CA-GLAXOSMITHKLINE-CA2018GSK049945

PATIENT
  Sex: Male

DRUGS (1)
  1. MEPOLIZUMAB [Suspect]
     Active Substance: MEPOLIZUMAB
     Indication: ASTHMA
     Dosage: 100 MG, Z
     Route: 042

REACTIONS (7)
  - Large intestine polyp [Unknown]
  - Abdominal adhesions [Unknown]
  - Dyspnoea [Unknown]
  - Haematochezia [Unknown]
  - Colon neoplasm [Unknown]
  - Intestinal cyst [Unknown]
  - Incision site erythema [Unknown]

NARRATIVE: CASE EVENT DATE: 2017
